FAERS Safety Report 21891040 (Version 3)
Quarter: 2023Q1

REPORT INFORMATION
  Report Type: Spontaneous
  Country: CN (occurrence: CN)
  Receive Date: 20230120
  Receipt Date: 20230127
  Transmission Date: 20230418
  Serious: Yes (Other)
  Sender: FDA-Public Use
  Company Number: CN-PFIZER INC-PV202300012038

PATIENT
  Age: 32 Year
  Sex: Female

DRUGS (2)
  1. MEROPENEM [Suspect]
     Active Substance: MEROPENEM
     Indication: Puerperal infection
     Dosage: 1 G, 3X/DAY (Q8H)
     Route: 042
  2. MOXIFLOXACIN [Concomitant]
     Active Substance: MOXIFLOXACIN
     Indication: Puerperal infection
     Dosage: 0.4 G, DAILY
     Route: 042

REACTIONS (3)
  - Hypoaesthesia [Recovering/Resolving]
  - Hyporeflexia [Recovering/Resolving]
  - Hypokinesia [Recovering/Resolving]
